FAERS Safety Report 5984075-4 (Version None)
Quarter: 2008Q4

REPORT INFORMATION
  Report Type: 
  Country: None (occurrence: None)
  Receive Date: 20081208
  Receipt Date: 20081127
  Transmission Date: 20090506
  Serious: Yes (Other)
  Sender: FDA-Public Use
  Company Number: GB-ELI_LILLY_AND_COMPANY-GB200811006342

PATIENT
  Age: 36 Year
  Sex: Female

DRUGS (4)
  1. GEMZAR [Suspect]
     Indication: ADENOCARCINOMA
     Dosage: UNK, UNKNOWN
     Route: 065
  2. CARBOPLATIN [Concomitant]
     Indication: ADENOCARCINOMA
     Dosage: UNK, UNKNOWN
     Route: 065
  3. TARCEVA [Concomitant]
     Indication: ADENOCARCINOMA
     Dosage: UNK, UNKNOWN
     Route: 065
     Dates: start: 20081024
  4. TAXOTERE [Concomitant]
     Indication: ADENOCARCINOMA
     Dosage: UNK, UNKNOWN
     Route: 065

REACTIONS (3)
  - CONVULSION [None]
  - DISEASE PROGRESSION [None]
  - DRUG INEFFECTIVE [None]
